FAERS Safety Report 7834108-5 (Version None)
Quarter: 2011Q4

REPORT INFORMATION
  Report Type: 
  Country: None (occurrence: None)
  Receive Date: 20111024
  Receipt Date: 20111010
  Transmission Date: 20120403
  Serious: Yes (Other)
  Sender: FDA-Public Use
  Company Number: PHHY2011IT76046

PATIENT
  Sex: Male

DRUGS (3)
  1. TASIGNA [Suspect]
     Dosage: 200 MG, QD
     Route: 048
     Dates: start: 20110301
  2. TASIGNA [Suspect]
     Indication: CHRONIC MYELOID LEUKAEMIA
     Dosage: 400 MG, QD
     Route: 048
     Dates: start: 20110601
  3. TASIGNA [Suspect]
     Dosage: 800 MG, UNK
     Dates: start: 20110515, end: 20110809

REACTIONS (7)
  - AORTIC STENOSIS [None]
  - FEMORAL ARTERY OCCLUSION [None]
  - PAIN IN EXTREMITY [None]
  - LEFT ATRIAL DILATATION [None]
  - INTERMITTENT CLAUDICATION [None]
  - PERIPHERAL EMBOLISM [None]
  - PERIPHERAL ARTERIAL OCCLUSIVE DISEASE [None]
